FAERS Safety Report 19918792 (Version 2)
Quarter: 2021Q4

REPORT INFORMATION
  Report Type: Spontaneous
  Country: PT (occurrence: None)
  Receive Date: 20211004
  Receipt Date: 20211115
  Transmission Date: 20220303
  Serious: Yes (Other)
  Sender: FDA-Public Use
  Company Number: 2021A747955

PATIENT
  Age: 17 Year
  Sex: Male
  Weight: 59 kg

DRUGS (4)
  1. KOSELUGO [Suspect]
     Active Substance: SELUMETINIB
     Dosage: DOSE CHANGED FROM 40MG/2XDAY TO 60MG/2XDAY
     Route: 048
     Dates: start: 20180504
  2. KOSELUGO [Suspect]
     Active Substance: SELUMETINIB
     Dosage: REDUCED TO 40MG/2XDAY
     Route: 048
     Dates: start: 20210309
  3. GABAPENTIN [Concomitant]
     Active Substance: GABAPENTIN
  4. ACETAMINOPHEN [Concomitant]
     Active Substance: ACETAMINOPHEN

REACTIONS (14)
  - Pericardial effusion [Unknown]
  - Overdose [Unknown]
  - Dysuria [Unknown]
  - Abdominal pain [Unknown]
  - Neutropenia [Unknown]
  - Proteinuria [Recovered/Resolved]
  - Haemoglobinuria [Unknown]
  - Aortic valve incompetence [Unknown]
  - Tricuspid valve incompetence [Unknown]
  - Mouth ulceration [Unknown]
  - Decreased appetite [Unknown]
  - Gynaecomastia [Unknown]
  - Pain in extremity [Recovered/Resolved]
  - Scrotal pain [Recovered/Resolved]

NARRATIVE: CASE EVENT DATE: 20210827
